FAERS Safety Report 9915859 (Version 1)
Quarter: 2014Q1

REPORT INFORMATION
  Report Type: Spontaneous
  Country: FR (occurrence: None)
  Receive Date: 20140218
  Receipt Date: 20140218
  Transmission Date: 20141002
  Serious: Yes (Hospitalization)
  Sender: FDA-Public Use
  Company Number: 7268883

PATIENT
  Age: 59 Year
  Sex: Female

DRUGS (1)
  1. LEVOTHYROX [Suspect]
     Indication: HYPOTHYROIDISM
     Route: 048
     Dates: start: 20140102, end: 20140104

REACTIONS (11)
  - Aspartate aminotransferase increased [None]
  - Alanine aminotransferase increased [None]
  - Gamma-glutamyltransferase increased [None]
  - Sinus tachycardia [None]
  - Intentional overdose [None]
  - Suicide attempt [None]
  - Incoherent [None]
  - Myalgia [None]
  - Thyroxine increased [None]
  - Tri-iodothyronine increased [None]
  - Blood thyroid stimulating hormone decreased [None]
